FAERS Safety Report 20950711 (Version 1)
Quarter: 2022Q2

REPORT INFORMATION
  Report Type: Spontaneous
  Country: US (occurrence: US)
  Receive Date: 20220613
  Receipt Date: 20220613
  Transmission Date: 20220721
  Serious: No
  Sender: FDA-Public Use
  Company Number: US-PFIZER INC-202200823866

PATIENT

DRUGS (1)
  1. ATROPINE SULFATE [Suspect]
     Active Substance: ATROPINE SULFATE
     Dosage: UNK

REACTIONS (1)
  - Inflammation [Unknown]
